FAERS Safety Report 5102977-8 (Version None)
Quarter: 2006Q3

REPORT INFORMATION
  Report Type: 
  Country: None (occurrence: None)
  Receive Date: 20060907
  Receipt Date: 20060904
  Transmission Date: 20061208
  Serious: Yes (Other)
  Sender: FDA-Public Use
  Company Number: GBWYE848204SEP06

PATIENT
  Age: 6 Year
  Sex: Male

DRUGS (1)
  1. IBUPROFEN [Suspect]
     Indication: EAR PAIN
     Dosage: 5ML ONCE ORAL
     Route: 048
     Dates: start: 20060423, end: 20060423

REACTIONS (2)
  - RASH GENERALISED [None]
  - SKIN REACTION [None]
